FAERS Safety Report 8156648-4 (Version None)
Quarter: 2012Q1

REPORT INFORMATION
  Report Type: 
  Country: None (occurrence: None)
  Receive Date: 20120216
  Receipt Date: 20120201
  Transmission Date: 20120608
  Serious: Yes (Life-Threatening, Hospitalization)
  Sender: FDA-Public Use
  Company Number: 20120026

PATIENT
  Age: 26 Year
  Sex: Female

DRUGS (3)
  1. HALOPERIDOL [Suspect]
     Indication: AGITATION
  2. BETAMETHASONE SODIUM PHOSPHATE AND BETAMETHASONE ACETATE [Suspect]
     Indication: MATERNAL THERAPY TO ENHANCE FOETAL LUNG MATURITY
  3. TERBUTALINE [Concomitant]

REACTIONS (9)
  - HYPERAMMONAEMIA [None]
  - MATERNAL EXPOSURE DURING PREGNANCY [None]
  - UNRESPONSIVE TO STIMULI [None]
  - INFECTION [None]
  - AGITATION [None]
  - HAEMODIALYSIS [None]
  - PLASMA PROTEIN METABOLISM DISORDER [None]
  - MENTAL STATUS CHANGES [None]
  - DYSTONIA [None]
